FAERS Safety Report 5155301-9 (Version None)
Quarter: 2006Q4

REPORT INFORMATION
  Report Type: 
  Country: None (occurrence: None)
  Receive Date: 20061121
  Receipt Date: 20060918
  Transmission Date: 20070319
  Serious: Yes (Life-Threatening)
  Sender: FDA-Public Use
  Company Number: 2006CG01528

PATIENT
  Age: 17222 Day
  Sex: Female
  Weight: 56 kg

DRUGS (11)
  1. CARBOCAINE [Suspect]
     Indication: POSTOPERATIVE ANALGESIA
     Route: 053
     Dates: start: 20060914, end: 20060914
  2. DIPRIVAN [Concomitant]
     Indication: GENERAL ANAESTHESIA
     Route: 042
     Dates: start: 20060914, end: 20060914
  3. HYPNOVEL [Concomitant]
     Dates: start: 20060914, end: 20060914
  4. SUFENTANIL CITRATE [Concomitant]
     Indication: GENERAL ANAESTHESIA
     Dates: start: 20060914, end: 20060914
  5. CEFAZOLIN [Concomitant]
     Route: 042
     Dates: start: 20060914
  6. NIMBEX [Concomitant]
     Indication: GENERAL ANAESTHESIA
     Dates: start: 20060914, end: 20060914
  7. DESFLURANE [Concomitant]
     Indication: GENERAL ANAESTHESIA
     Dates: start: 20060914, end: 20060914
  8. IMOVANE [Concomitant]
     Indication: PREMEDICATION
     Route: 048
     Dates: start: 20060913, end: 20060913
  9. ATARAX [Concomitant]
     Indication: PREMEDICATION
     Dates: start: 20060914, end: 20060914
  10. MORPHINE [Concomitant]
     Dates: start: 20060914
  11. ACETAMINOPHEN [Concomitant]
     Route: 042
     Dates: start: 20060914

REACTIONS (1)
  - ANAPHYLACTIC SHOCK [None]
